FAERS Safety Report 13041280 (Version 1)
Quarter: 2016Q4

REPORT INFORMATION
  Report Type: Spontaneous
  Country: US (occurrence: US)
  Receive Date: 20161219
  Receipt Date: 20161219
  Transmission Date: 20170207
  Serious: No
  Sender: FDA-Public Use
  Company Number: US-ROCHE-1067379

PATIENT
  Age: 48 Year
  Sex: Male

DRUGS (3)
  1. TYLENOL [Concomitant]
     Active Substance: ACETAMINOPHEN
     Indication: PYREXIA
     Route: 048
  2. ZELBORAF [Suspect]
     Active Substance: VEMURAFENIB
     Indication: MALIGNANT MELANOMA
     Route: 048
     Dates: start: 20120418
  3. ALEVE [Concomitant]
     Active Substance: NAPROXEN SODIUM
     Indication: PYREXIA
     Route: 048

REACTIONS (12)
  - Alopecia [Unknown]
  - Pyrexia [Recovered/Resolved]
  - Sunburn [Recovered/Resolved]
  - Mass [Unknown]
  - Flatulence [Unknown]
  - Chills [Unknown]
  - Decreased appetite [Unknown]
  - Rash [Recovered/Resolved]
  - Pain [Recovered/Resolved]
  - Dysgeusia [Unknown]
  - Arthralgia [Unknown]
  - Fatigue [Unknown]

NARRATIVE: CASE EVENT DATE: 20120423
